FAERS Safety Report 13541202 (Version 3)
Quarter: 2017Q2

REPORT INFORMATION
  Report Type: Spontaneous
  Country: BR (occurrence: BR)
  Receive Date: 20170512
  Receipt Date: 20170629
  Transmission Date: 20170830
  Serious: Yes (Hospitalization)
  Sender: FDA-Public Use
  Company Number: BR-PFIZER INC-2017205200

PATIENT
  Sex: Female

DRUGS (1)
  1. EFFEXOR XR [Suspect]
     Active Substance: VENLAFAXINE HYDROCHLORIDE
     Dosage: 225 MG, DAILY (3 PER DAY)

REACTIONS (5)
  - Depression [Unknown]
  - Confusional state [Not Recovered/Not Resolved]
  - Sedation [Unknown]
  - Mental disorder [Not Recovered/Not Resolved]
  - Schizophrenia [Unknown]
